FAERS Safety Report 24746778 (Version 1)
Quarter: 2024Q4

REPORT INFORMATION
  Report Type: Spontaneous
  Country: CN (occurrence: CN)
  Receive Date: 20241218
  Receipt Date: 20241218
  Transmission Date: 20250115
  Serious: Yes (Hospitalization, Other)
  Sender: BAXTER
  Company Number: None

PATIENT
  Age: 58 Year
  Sex: Female
  Weight: 54 kg

DRUGS (2)
  1. IFOSFAMIDE [Suspect]
     Active Substance: IFOSFAMIDE
     Indication: Drug therapy
     Dosage: 2.5 G, ONE TIME IN ONE DAY, D1-3, AS A PART OF AI REGIMEN
     Route: 041
     Dates: start: 20241012, end: 20241014
  2. EPIRUBICIN HYDROCHLORIDE [Suspect]
     Active Substance: EPIRUBICIN HYDROCHLORIDE
     Indication: Symptomatic treatment
     Dosage: 100 MG, ONE TIME IN ONE DAY, D1, AS A PART OF AI REGIMEN
     Route: 041
     Dates: start: 20241012, end: 20241012

REACTIONS (3)
  - Cervix carcinoma stage I [Unknown]
  - Condition aggravated [Unknown]
  - Myelosuppression [Recovering/Resolving]

NARRATIVE: CASE EVENT DATE: 20241024
